FAERS Safety Report 6088628-7 (Version None)
Quarter: 2009Q1

REPORT INFORMATION
  Report Type: 
  Country: None (occurrence: None)
  Receive Date: 20090224
  Receipt Date: 20090212
  Transmission Date: 20090719
  Serious: Yes (Life-Threatening, Hospitalization, Other)
  Sender: FDA-Public Use
  Company Number: JP-PFIZER INC-2009155119

PATIENT

DRUGS (9)
  1. NORPACE [Suspect]
     Indication: ATRIAL FIBRILLATION
     Dosage: 150 MG, 2X/DAY
     Dates: start: 20080812, end: 20080816
  2. VALSARTAN [Concomitant]
     Dosage: UNK
     Route: 048
  3. LASIX [Concomitant]
     Dosage: UNK
     Route: 049
  4. ALDACTONE [Concomitant]
     Dosage: UNK
     Route: 048
  5. NITRODERM [Concomitant]
     Dosage: UNK
     Route: 062
  6. HOKUNALIN [Concomitant]
     Dosage: UNK
     Route: 062
  7. QVAR 40 [Concomitant]
     Route: 045
  8. MITIGLINIDE [Concomitant]
     Dosage: UNK
     Route: 048
     Dates: start: 20080812
  9. HANP [Concomitant]
     Dosage: UNK
     Route: 042
     Dates: start: 20080808, end: 20080909

REACTIONS (5)
  - HYPOKALAEMIA [None]
  - LOSS OF CONSCIOUSNESS [None]
  - TORSADE DE POINTES [None]
  - VENTRICULAR FIBRILLATION [None]
  - VENTRICULAR TACHYCARDIA [None]
